FAERS Safety Report 15159507 (Version 2)
Quarter: 2018Q3

REPORT INFORMATION
  Report Type: Spontaneous
  Country: DE (occurrence: DE)
  Receive Date: 20180718
  Receipt Date: 20180724
  Transmission Date: 20181010
  Serious: Yes (Death, Hospitalization)
  Sender: FDA-Public Use
  Company Number: DE-009507513-2005-09-0329

PATIENT
  Age: 75 Year
  Sex: Female
  Weight: 60 kg

DRUGS (1)
  1. TEMODAL [Suspect]
     Active Substance: TEMOZOLOMIDE
     Indication: GLIOSARCOMA
     Dosage: 75 MG/M^2 1 MONTH(S)
     Route: 048
     Dates: start: 20050712, end: 20050812

REACTIONS (6)
  - Respiratory failure [Fatal]
  - C-reactive protein increased [Fatal]
  - Pneumonia [Fatal]
  - Subileus [Fatal]
  - Pancytopenia [Fatal]
  - Cardiac failure [Fatal]

NARRATIVE: CASE EVENT DATE: 20050814
